FAERS Safety Report 17546558 (Version 4)
Quarter: 2020Q3

REPORT INFORMATION
  Report Type: Report from Study
  Country: None (occurrence: GB)
  Receive Date: 20200316
  Receipt Date: 20200922
  Transmission Date: 20201102
  Serious: Yes (Hospitalization)
  Sender: FDA-Public Use
  Company Number: GB-ABBVIE-20P-167-3309261-00

PATIENT
  Age: 29 Year
  Sex: Male

DRUGS (2)
  1. VENETOCLAX. [Suspect]
     Active Substance: VENETOCLAX
     Indication: CHRONIC LYMPHOCYTIC LEUKAEMIA
     Dosage: WEEK 9
     Route: 048
     Dates: start: 20200303, end: 20200304
  2. IBRUTINIB [Suspect]
     Active Substance: IBRUTINIB
     Indication: CHRONIC LYMPHOCYTIC LEUKAEMIA
     Dosage: 8 WEEK IBRUTINIB
     Route: 048
     Dates: start: 20200107, end: 20200304

REACTIONS (6)
  - Hyperkalaemia [Unknown]
  - Hyperuricaemia [Unknown]
  - Tumour lysis syndrome [Recovered/Resolved]
  - Chills [Not Recovered/Not Resolved]
  - Pyrexia [Recovered/Resolved]
  - Hyperphosphataemia [Unknown]

NARRATIVE: CASE EVENT DATE: 20200305
